FAERS Safety Report 10936832 (Version 2)
Quarter: 2015Q2

REPORT INFORMATION
  Report Type: Spontaneous
  Country: US (occurrence: US)
  Receive Date: 20150321
  Receipt Date: 20150525
  Transmission Date: 20150821
  Serious: No
  Sender: FDA-Public Use
  Company Number: US-JNJFOC-20140314422

PATIENT
  Age: 26 Year
  Sex: Female
  Weight: 50.8 kg

DRUGS (1)
  1. TOPIRAMATE. [Suspect]
     Active Substance: TOPIRAMATE
     Indication: AFFECT LABILITY
     Route: 048
     Dates: start: 201403, end: 201403

REACTIONS (2)
  - Emotional disorder [Recovered/Resolved]
  - Product use issue [Unknown]

NARRATIVE: CASE EVENT DATE: 201403
